FAERS Safety Report 4744512-X (Version None)
Quarter: 2005Q3

REPORT INFORMATION
  Report Type: 
  Country: None (occurrence: None)
  Receive Date: 20050812
  Receipt Date: 20050622
  Transmission Date: 20060218
  Serious: Yes (Hospitalization)
  Sender: FDA-Public Use
  Company Number: US-AMGEN-US139804

PATIENT
  Sex: Male
  Weight: 80.8 kg

DRUGS (15)
  1. NEUPOGEN [Suspect]
     Indication: CHEMOTHERAPY
     Route: 058
     Dates: start: 20041129
  2. DIFLUCAN [Concomitant]
  3. BACTRIM [Concomitant]
  4. FAMVIR [Concomitant]
  5. RADIATION THERAPY [Concomitant]
     Dates: start: 20050601
  6. CAMPATH (ILEX PHARMACEUTICALS) [Concomitant]
     Dates: start: 20050301, end: 20050401
  7. ADRIAMYCIN PFS [Concomitant]
     Dates: start: 20041101, end: 20041201
  8. DEXAMETHASONE [Concomitant]
     Dates: start: 20041101, end: 20041201
  9. CYCLOPHOSPHAMIDE [Concomitant]
     Dates: start: 20041101, end: 20041201
  10. VINCRISTINE [Concomitant]
     Dates: start: 20041101, end: 20041201
  11. MESNA [Concomitant]
     Dates: start: 20041101, end: 20041201
  12. CYTARABINE [Concomitant]
     Dates: start: 20041101, end: 20041201
  13. METHOTREXATE [Concomitant]
     Dates: start: 20041101, end: 20041201
  14. RITUXAN [Concomitant]
     Dates: start: 20041101, end: 20041201
  15. GM-CSF [Concomitant]
     Dates: start: 20050101

REACTIONS (2)
  - BONE PAIN [None]
  - PNEUMONIA [None]
